FAERS Safety Report 4804145-3 (Version None)
Quarter: 2005Q4

REPORT INFORMATION
  Report Type: 
  Country: None (occurrence: None)
  Receive Date: 20051013
  Receipt Date: 20050927
  Transmission Date: 20060501
  Serious: Yes (Other)
  Sender: FDA-Public Use
  Company Number: JP_050907668

PATIENT
  Age: 71 Year
  Sex: Male

DRUGS (3)
  1. HUMULIN R [Suspect]
     Dosage: 10 U IN THE MORNING
     Dates: start: 20010501
  2. HUMALOG [Suspect]
     Dosage: 10 U DAY
  3. NPH INSULIN [Concomitant]

REACTIONS (3)
  - DECREASED APPETITE [None]
  - HYPERGLYCAEMIA [None]
  - HYPOGLYCAEMIA [None]
